FAERS Safety Report 25029963 (Version 1)
Quarter: 2025Q1

REPORT INFORMATION
  Report Type: Spontaneous
  Country: US (occurrence: US)
  Receive Date: 20250303
  Receipt Date: 20250303
  Transmission Date: 20250409
  Serious: No
  Sender: CIPLA
  Company Number: US-CIPLA LTD.-2025US00819

PATIENT

DRUGS (4)
  1. TENOFOVIR [Suspect]
     Active Substance: TENOFOVIR
     Route: 064
     Dates: start: 2023, end: 20240314
  2. DARUNAVIR [Suspect]
     Active Substance: DARUNAVIR
     Route: 064
     Dates: start: 2023, end: 20240314
  3. DOLUTEGRAVIR [Suspect]
     Active Substance: DOLUTEGRAVIR
     Route: 064
     Dates: start: 2023, end: 20240314
  4. RITONAVIR [Suspect]
     Active Substance: RITONAVIR
     Route: 064
     Dates: start: 2023, end: 20240314

REACTIONS (4)
  - Peritoneal cyst [Unknown]
  - Low birth weight baby [Unknown]
  - Foetal exposure during pregnancy [Unknown]
  - Scrotal cyst [Unknown]

NARRATIVE: CASE EVENT DATE: 20230101
